FAERS Safety Report 5450397-9 (Version None)
Quarter: 2007Q3

REPORT INFORMATION
  Report Type: 
  Country: None (occurrence: None)
  Receive Date: 20070912
  Receipt Date: 20070904
  Transmission Date: 20080115
  Serious: Yes (Other)
  Sender: FDA-Public Use
  Company Number: US-PFIZER INC-2007073995

PATIENT
  Sex: Female
  Weight: 78.636 kg

DRUGS (2)
  1. CARDURA [Suspect]
     Indication: BLOOD PRESSURE
     Route: 048
  2. LANTUS [Concomitant]

REACTIONS (3)
  - ALOPECIA [None]
  - BLOOD PRESSURE INADEQUATELY CONTROLLED [None]
  - BLOOD PRESSURE INCREASED [None]
